FAERS Safety Report 15379017 (Version 4)
Quarter: 2018Q4

REPORT INFORMATION
  Report Type: Spontaneous
  Country: US (occurrence: US)
  Receive Date: 20180913
  Receipt Date: 20181012
  Transmission Date: 20190204
  Serious: Yes (Other)
  Sender: FDA-Public Use
  Company Number: US-BRISTOL-MYERS SQUIBB COMPANY-BMS-2018-084198

PATIENT
  Age: 73 Year
  Sex: Female
  Weight: 70.76 kg

DRUGS (3)
  1. SYNTHROID [Concomitant]
     Active Substance: LEVOTHYROXINE SODIUM
     Indication: PRODUCT USED FOR UNKNOWN INDICATION
     Dosage: UNK
     Route: 065
  2. ELIQUIS [Suspect]
     Active Substance: APIXABAN
     Indication: CEREBROVASCULAR ACCIDENT PROPHYLAXIS
     Dosage: 5 MG, BID
     Route: 048
     Dates: start: 20180822
  3. ELIQUIS [Suspect]
     Active Substance: APIXABAN
     Indication: PRODUCT USED FOR UNKNOWN INDICATION
     Dosage: 2 DF, QD, MORNIG
     Route: 048

REACTIONS (20)
  - Extra dose administered [Unknown]
  - Chest pain [Unknown]
  - Confusional state [Unknown]
  - Stress [Unknown]
  - Dizziness [Unknown]
  - Pain [Recovering/Resolving]
  - Weight decreased [Unknown]
  - Fall [Recovering/Resolving]
  - Depersonalisation/derealisation disorder [Unknown]
  - Back injury [Recovering/Resolving]
  - Malaise [Unknown]
  - Asthenia [Unknown]
  - Hypotension [Unknown]
  - Fatigue [Unknown]
  - Blood pressure fluctuation [Unknown]
  - Escherichia infection [Unknown]
  - Myocardial infarction [Unknown]
  - Vision blurred [Unknown]
  - Contusion [Recovering/Resolving]
  - Blood test abnormal [Unknown]

NARRATIVE: CASE EVENT DATE: 20180830
